FAERS Safety Report 5378873-8 (Version None)
Quarter: 2007Q2

REPORT INFORMATION
  Report Type: 
  Country: None (occurrence: None)
  Receive Date: 20070530
  Receipt Date: 20070221
  Transmission Date: 20071010
  Serious: No
  Sender: FDA-Public Use
  Company Number: 2007PV030446

PATIENT
  Age: 58 Year
  Sex: Female
  Weight: 79.8331 kg

DRUGS (3)
  1. BYETTA [Suspect]
     Indication: DIABETES MELLITUS
     Dosage: 5 MCG; BID; SC
     Route: 058
     Dates: start: 20070215
  2. ACTOS [Suspect]
     Indication: DIABETES MELLITUS
     Dosage: 30 MG; 45 MG; QD;
     Dates: start: 20070201, end: 20070201
  3. ACTOS [Suspect]
     Indication: DIABETES MELLITUS
     Dosage: 30 MG; 45 MG; QD;
     Dates: end: 20070201

REACTIONS (10)
  - ANOREXIA [None]
  - BLOOD GLUCOSE INCREASED [None]
  - DISTURBANCE IN ATTENTION [None]
  - DIZZINESS [None]
  - HEADACHE [None]
  - INJECTION SITE BRUISING [None]
  - NAUSEA [None]
  - STOMACH DISCOMFORT [None]
  - URTICARIA [None]
  - WEIGHT FLUCTUATION [None]
